FAERS Safety Report 19670347 (Version 1)
Quarter: 2021Q3

REPORT INFORMATION
  Report Type: Spontaneous
  Country: US (occurrence: US)
  Receive Date: 20210806
  Receipt Date: 20210806
  Transmission Date: 20211014
  Serious: Yes (Hospitalization)
  Sender: FDA-Public Use
  Company Number: US-SAOL THERAPEUTICS-2021SAO00060

PATIENT
  Age: 34 Year
  Sex: Female

DRUGS (2)
  1. MORPHINE [Suspect]
     Active Substance: MORPHINE
     Dosage: 4.283 MG/ML (PRESUMED MG/DAY)
     Route: 037
  2. LIORESAL [Suspect]
     Active Substance: BACLOFEN
     Dosage: 449.7 ?G, \DAY
     Route: 037

REACTIONS (3)
  - Drug withdrawal syndrome [Recovered/Resolved]
  - Implant site extravasation [Recovered/Resolved]
  - Complication associated with device [Recovered/Resolved]

NARRATIVE: CASE EVENT DATE: 20210215
